FAERS Safety Report 16266072 (Version 1)
Quarter: 2019Q2

REPORT INFORMATION
  Report Type: Spontaneous
  Country: NL (occurrence: RO)
  Receive Date: 20190502
  Receipt Date: 20190502
  Transmission Date: 20190711
  Serious: Yes (Hospitalization, Other)
  Sender: FDA-Public Use
  Company Number: RO-FRESENIUS KABI-FK201904945

PATIENT
  Age: 52 Year
  Sex: Male

DRUGS (3)
  1. ZOLEDRONIC ACID (MANUFACTURER UNKNOWN) [Suspect]
     Active Substance: ZOLEDRONIC ACID
     Indication: METASTATIC RENAL CELL CARCINOMA
     Dosage: 4 MG, CYCLIC AT 28 DAYS
     Route: 065
     Dates: start: 201612, end: 201703
  2. AXITINIB [Suspect]
     Active Substance: AXITINIB
     Indication: METASTATIC RENAL CELL CARCINOMA
     Dosage: 3 MG, 2X/DAY
     Route: 065
     Dates: start: 20180322, end: 20180530
  3. AXITINIB [Suspect]
     Active Substance: AXITINIB
     Dosage: 5 MG, 2X/DAY
     Route: 065
     Dates: end: 201802

REACTIONS (9)
  - Bundle branch block right [Unknown]
  - Pulmonary infarction [Unknown]
  - Blood creatinine increased [Unknown]
  - Sepsis [Unknown]
  - Angiopathy [Unknown]
  - Pulmonary embolism [Unknown]
  - Deep vein thrombosis [Unknown]
  - Acute respiratory failure [Unknown]
  - Pericarditis [Unknown]

NARRATIVE: CASE EVENT DATE: 20180322
